FAERS Safety Report 10079206 (Version 1)
Quarter: 2014Q2

REPORT INFORMATION
  Report Type: Spontaneous
  Country: US (occurrence: US)
  Receive Date: 20140415
  Receipt Date: 20140415
  Transmission Date: 20141212
  Serious: Yes (Hospitalization)
  Sender: FDA-Public Use
  Company Number: US-BAYER-2014-053193

PATIENT
  Age: 49 Year
  Sex: Female
  Weight: 60 kg

DRUGS (9)
  1. BETASERON [Suspect]
     Indication: MULTIPLE SCLEROSIS
     Dosage: 0.3 MG, EVERY OTHER DAY
     Route: 058
     Dates: start: 20100324, end: 20140327
  2. FIORICET [Concomitant]
     Indication: HEADACHE
     Dosage: 1 QD FOR 30 DAYS PRN
  3. FIORGEN PF [Concomitant]
     Dosage: 1 TO 2 CAPSULES Q4H PRN NOT TO EXCEED 6 PER 24 HOURS
     Route: 048
  4. BACLOFEN [Concomitant]
     Dosage: 1 DF, BID
     Route: 048
  5. GABAPENTIN [Concomitant]
     Dosage: 1 DF, TID FOR 30 DAYS
     Route: 048
  6. WELLBUTRIN XL [Concomitant]
     Dosage: 300 MG, QD
  7. ZOLPIDEM [Concomitant]
     Dosage: 1 DF, HS
  8. VITAMIN D [Concomitant]
  9. COQ10 [Concomitant]

REACTIONS (10)
  - Injection site cellulitis [Recovered/Resolved]
  - Injection site cellulitis [Recovered/Resolved]
  - Hypoaesthesia [None]
  - Pain in extremity [None]
  - Fatigue [None]
  - Dizziness [None]
  - Balance disorder [None]
  - Cognitive disorder [None]
  - Pollakiuria [None]
  - White blood cell count decreased [Recovered/Resolved]
